FAERS Safety Report 18011758 (Version 2)
Quarter: 2020Q3

REPORT INFORMATION
  Report Type: Spontaneous
  Country: FR (occurrence: FR)
  Receive Date: 20200713
  Receipt Date: 20200721
  Transmission Date: 20201103
  Serious: Yes (Hospitalization, Other)
  Sender: FDA-Public Use
  Company Number: FR-PFIZER INC-2020262347

PATIENT
  Age: 71 Year
  Sex: Male

DRUGS (4)
  1. SUTENT [Suspect]
     Active Substance: SUNITINIB MALATE
     Dosage: 50 MG, CYCLIC 2/3
     Route: 048
     Dates: start: 20140917
  2. SUTENT [Suspect]
     Active Substance: SUNITINIB MALATE
     Indication: RENAL CANCER METASTATIC
     Dosage: 50 MG, CYCLIC 2/3
     Route: 048
     Dates: start: 20140723
  3. SUTENT [Suspect]
     Active Substance: SUNITINIB MALATE
     Dosage: 50 MG, CYCLIC THEN 4/2 AT THE END OF ONE CYCLE
     Route: 048
  4. SUTENT [Suspect]
     Active Substance: SUNITINIB MALATE
     Dosage: 37.5 MG, CYCLIC 2/3
     Route: 048
     Dates: start: 20170407

REACTIONS (33)
  - Haematoma [Unknown]
  - Hypertension [Unknown]
  - Neoplasm progression [Unknown]
  - Diarrhoea [Unknown]
  - Decreased appetite [Unknown]
  - Skin toxicity [Unknown]
  - Hypothyroidism [Unknown]
  - Dysuria [Unknown]
  - Erythema [Unknown]
  - Vision blurred [Unknown]
  - Cataract [Unknown]
  - Flank pain [Unknown]
  - Urine flow decreased [Unknown]
  - Inguinal hernia [Unknown]
  - Scar pain [Unknown]
  - Eyelid oedema [Unknown]
  - Adrenal insufficiency [Unknown]
  - Coronary artery occlusion [Unknown]
  - Haematuria [Unknown]
  - Lymphocele [Unknown]
  - Tooth fracture [Unknown]
  - Asthenia [Unknown]
  - Insomnia [Unknown]
  - Dry mouth [Unknown]
  - Lacrimation increased [Unknown]
  - Epistaxis [Unknown]
  - Diplopia [Unknown]
  - Nausea [Unknown]
  - Blood calcium decreased [Unknown]
  - Abdominal pain lower [Unknown]
  - Lower urinary tract symptoms [Unknown]
  - Fatigue [Unknown]
  - Weight decreased [Unknown]

NARRATIVE: CASE EVENT DATE: 20140806
